FAERS Safety Report 9379460 (Version 3)
Quarter: 2015Q3

REPORT INFORMATION
  Report Type: Spontaneous
  Country: BR (occurrence: BR)
  Receive Date: 20130702
  Receipt Date: 20150916
  Transmission Date: 20151125
  Serious: Yes (Hospitalization, Other)
  Sender: FDA-Public Use
  Company Number: BR-AMGEN-BRASP2013004076

PATIENT
  Age: 70 Year
  Sex: Female
  Weight: 54 kg

DRUGS (6)
  1. LOSARTAN. [Concomitant]
     Active Substance: LOSARTAN
     Indication: HYPERTENSION
     Dosage: 50 MG, 1X/DAY
  2. PREDNISONE. [Concomitant]
     Active Substance: PREDNISONE
     Indication: RHEUMATOID ARTHRITIS
     Dosage: UNK
  3. ENBREL [Suspect]
     Active Substance: ETANERCEPT
     Indication: RHEUMATOID ARTHRITIS
     Dosage: 50 MG, 1X/WEEK
     Route: 058
     Dates: start: 201212, end: 201502
  4. PREDNISONE. [Concomitant]
     Active Substance: PREDNISONE
     Indication: CONDITION AGGRAVATED
  5. METHOTREXATE [Concomitant]
     Active Substance: METHOTREXATE
     Dosage: STRENGTH 2.5MG, AT 2 CP (UNSPECIFIED IF TABLET OR CAPSULE) ON MONDAY AND TUESDAY
  6. PREDNISONE. [Concomitant]
     Active Substance: PREDNISONE
     Indication: ARTHRITIS
     Dosage: STRENGH 5MG AT 1 CP ( UNSPECIFIED IF TABLET OR CAPSULE) PER DAY

REACTIONS (10)
  - Rheumatoid arthritis [Unknown]
  - Anxiety [Unknown]
  - Injection site haematoma [Unknown]
  - Swelling [Not Recovered/Not Resolved]
  - Injection site pruritus [Unknown]
  - Injection site reaction [Not Recovered/Not Resolved]
  - Nodule [Unknown]
  - Drug ineffective [Unknown]
  - Condition aggravated [Unknown]
  - Injection site erythema [Not Recovered/Not Resolved]
